FAERS Safety Report 8112274-4 (Version None)
Quarter: 2012Q1

REPORT INFORMATION
  Report Type: 
  Country: None (occurrence: None)
  Receive Date: 20120203
  Receipt Date: 20120203
  Transmission Date: 20120608
  Serious: Yes (Hospitalization)
  Sender: FDA-Public Use
  Company Number: None

PATIENT
  Sex: Female

DRUGS (2)
  1. POLYMYXIN [Concomitant]
  2. CLINDAMYCIN [Suspect]
     Indication: WOUND TREATMENT

REACTIONS (2)
  - DERMATITIS CONTACT [None]
  - RASH [None]
